FAERS Safety Report 7294845-0 (Version None)
Quarter: 2011Q1

REPORT INFORMATION
  Report Type: 
  Country: None (occurrence: None)
  Receive Date: 20110216
  Receipt Date: 20110203
  Transmission Date: 20110831
  Serious: Yes (Hospitalization, Other)
  Sender: FDA-Public Use
  Company Number: US-ELI_LILLY_AND_COMPANY-US200909000315

PATIENT
  Sex: Female

DRUGS (46)
  1. FORTEO [Suspect]
     Dosage: 20 UG, DAILY (1/D)
  2. ULTRAM [Concomitant]
     Indication: BACK PAIN
     Dosage: 50 MG, 3/D
  3. NEXIUM [Concomitant]
     Dosage: 80 MG, EACH MORNING
  4. PULMICORT [Concomitant]
     Dosage: 400 UG, 2/D
  5. ARTIFICIAL TEARS /00445101/ [Concomitant]
  6. ZYRTEC [Concomitant]
     Indication: SEASONAL ALLERGY
     Dosage: 10 MG, EACH EVENING
  7. PREVACID [Concomitant]
     Dosage: 30 MG, DAILY (1/D)
  8. AQUARETIC [Concomitant]
     Indication: JOINT SWELLING
     Dosage: 100 MG, 2/D
  9. SINGULAIR [Concomitant]
     Indication: ASTHMA
     Dosage: 10 MG, EACH EVENING
  10. ALBUTEROL [Concomitant]
     Dosage: UNK, AS NEEDED
  11. CENTRUM SILVER [Concomitant]
  12. ACIDOPHILUS [Concomitant]
     Indication: LACTOSE INTOLERANCE
     Dosage: 34 MG, 3/D
  13. ASPIRIN [Concomitant]
     Indication: CARDIAC DISORDER
     Dosage: 81 MG, DAILY (1/D)
  14. FORTEO [Suspect]
     Indication: OSTEOPOROSIS POSTMENOPAUSAL
     Dosage: 20 UG, DAILY (1/D)
     Dates: start: 20090810
  15. OXYGEN [Concomitant]
     Dosage: 2 LITER, EACH EVENING
  16. ALBUTEROL [Concomitant]
     Dosage: 90 UG, 2/D
  17. METFORMIN HCL [Concomitant]
     Indication: DIABETES MELLITUS
     Dosage: 1000 MG, 2/D
  18. BACTRIM [Concomitant]
     Indication: HUMAN SEMINAL PLASMA HYPERSENSITIVITY
     Dosage: UNK, AS NEEDED
  19. COLACE [Concomitant]
  20. ANTIBIOTICS [Concomitant]
  21. FORTEO [Suspect]
     Dosage: 20 UG, DAILY (1/D)
  22. LANTUS [Concomitant]
     Indication: DIABETES MELLITUS
     Dosage: SLIDING SCALE, 18 UNITS IF NORMAL, 50 UNITS IF HIGH
  23. IBUPROFEN [Concomitant]
     Dosage: 800 MG, 3/D
  24. LOVASTATIN [Concomitant]
     Indication: BLOOD CHOLESTEROL INCREASED
     Dosage: 400 MG, DAILY (1/D)
  25. RHINOCORT [Concomitant]
     Dosage: 2 SPRAYS
  26. MSM WITH GLUCOSAMINE /05460301/ [Concomitant]
     Dosage: 500 MG, 3/D
  27. ASMANEX TWISTHALER [Concomitant]
     Indication: ASTHMA
     Dosage: 220 U, 2/D
  28. FLONASE [Concomitant]
     Indication: SEASONAL ALLERGY
     Dosage: 50 UG, AS NEEDED
  29. METOPROLOL [Concomitant]
     Dosage: 25 MG, 2/D
  30. VITAMIN B COMPLEX CAP [Concomitant]
  31. INSULIN [Concomitant]
     Dates: start: 20030101
  32. SKELAXIN [Concomitant]
     Indication: MUSCLE SPASMS
     Dosage: 400 MG, 2/D
  33. CALCIUM CARBONATE W/VITAMIN D /00944201/ [Concomitant]
     Dosage: UNK, EACH EVENING
  34. HERBAL OIL NOS [Concomitant]
     Indication: FIBROCYSTIC BREAST DISEASE
     Dosage: 1000 MG, 2/D
  35. HOMEOPATHIC PREPARATION [Concomitant]
     Indication: FUNGAL INFECTION
     Dosage: UNK, AS NEEDED
  36. LASIX [Concomitant]
  37. CALCIUM CITRATE WITH VITAMIN D [Concomitant]
     Dosage: 630 MG, UNK
  38. GLYBURIDE [Concomitant]
     Indication: DIABETES MELLITUS
     Dosage: 10 MG, 2/D
  39. CYCLOBENZAPRINE [Concomitant]
     Indication: MUSCLE SPASMS
     Dosage: 10 MG, EACH EVENING
  40. PROGESTERONE [Concomitant]
     Indication: HOT FLUSH
     Dosage: 0.25 D/F, 2/D
  41. BENADRYL [Concomitant]
     Indication: RESTLESS LEGS SYNDROME
     Dosage: 25 MG, EACH EVENING
  42. COUMADIN [Concomitant]
     Dosage: 7.5 MG, 6/W
  43. FORTEO [Suspect]
     Dosage: 20 UG, DAILY (1/D)
  44. SEREVENT [Concomitant]
     Dosage: 13 UG, 2/D
  45. ESTROVEN /02150801/ [Concomitant]
     Indication: MENOPAUSE
     Dosage: 1 D/F, EACH MORNING
  46. HERBAL PREPARATION [Concomitant]
     Dosage: 1000 MG, 2/D

REACTIONS (26)
  - AORTIC VALVE CALCIFICATION [None]
  - HAEMORRHAGE [None]
  - ROAD TRAFFIC ACCIDENT [None]
  - LIMB INJURY [None]
  - HAEMATURIA [None]
  - INJECTION SITE HAEMATOMA [None]
  - CARDIAC STRESS TEST [None]
  - PAIN [None]
  - IRON DEFICIENCY ANAEMIA [None]
  - NECK INJURY [None]
  - FATIGUE [None]
  - BLOOD CALCIUM DECREASED [None]
  - RESTLESS LEGS SYNDROME [None]
  - SOMNOLENCE [None]
  - BLADDER DISORDER [None]
  - CATHETERISATION CARDIAC [None]
  - EXERCISE TOLERANCE DECREASED [None]
  - CONTUSION [None]
  - MUSCLE SPASMS [None]
  - BLOOD CALCIUM INCREASED [None]
  - CYSTITIS [None]
  - VAGINAL HAEMORRHAGE [None]
  - PAIN IN EXTREMITY [None]
  - AORTIC STENOSIS [None]
  - ROTATOR CUFF SYNDROME [None]
  - AMNESIA [None]
